FAERS Safety Report 13491420 (Version 1)
Quarter: 2017Q2

REPORT INFORMATION
  Report Type: Spontaneous
  Country: US (occurrence: US)
  Receive Date: 20170427
  Receipt Date: 20170427
  Transmission Date: 20170830
  Serious: No
  Sender: FDA-Public Use
  Company Number: US-B.I. PHARMACEUTICALS,INC./RIDGEFIELD-2017-BI-023008

PATIENT
  Age: 73 Year
  Sex: Female

DRUGS (3)
  1. ZANTAC [Suspect]
     Active Substance: RANITIDINE HYDROCHLORIDE
     Indication: GASTRITIS
     Dosage: ONE TO TWO TABLETS DAILY;  FORM STRENGTH: 150 MG; FORMULATION: TABLET  ADMINISTRATION CORRECT? NR(NO
     Route: 048
     Dates: start: 2004, end: 201610
  2. ZANTAC [Suspect]
     Active Substance: RANITIDINE HYDROCHLORIDE
     Dosage: ONE TO TWO TABLETS DAILY;  FORM STRENGTH: 150 MG; FORMULATION: TABLET? ADMINISTRATION CORRECT? NR(NO
     Route: 048
     Dates: start: 20170421
  3. NEXIUM [Concomitant]
     Active Substance: ESOMEPRAZOLE MAGNESIUM
     Indication: PRODUCT USED FOR UNKNOWN INDICATION
     Dosage: ONCE A DAY;  FORM STRENGTH: 22.3 MG; FORMULATION: CAPSULE ACTION(S) TAKEN WITH PRODUCT: DRUG WITHDRA
     Route: 048
     Dates: start: 20170413, end: 20170420

REACTIONS (9)
  - Abdominal distension [Not Recovered/Not Resolved]
  - Urticaria [Not Recovered/Not Resolved]
  - Osteopenia [Not Recovered/Not Resolved]
  - Flushing [Not Recovered/Not Resolved]
  - Abdominal pain upper [Not Recovered/Not Resolved]
  - Pruritus [Not Recovered/Not Resolved]
  - Off label use [Not Recovered/Not Resolved]
  - Pruritus [Not Recovered/Not Resolved]
  - Medication error [Unknown]

NARRATIVE: CASE EVENT DATE: 2004
